FAERS Safety Report 23092059 (Version 12)
Quarter: 2025Q1

REPORT INFORMATION
  Report Type: Spontaneous
  Country: GB (occurrence: GB)
  Receive Date: 20231021
  Receipt Date: 20250116
  Transmission Date: 20250408
  Serious: Yes (Life-Threatening, Hospitalization, Other)
  Sender: CELLTRION
  Company Number: GB-CELLTRION INC.-2023GB020108

PATIENT

DRUGS (56)
  1. RITUXIMAB [Suspect]
     Active Substance: RITUXIMAB
     Indication: Follicular lymphoma
     Route: 042
     Dates: start: 20230316
  2. RITUXIMAB [Suspect]
     Active Substance: RITUXIMAB
     Route: 042
     Dates: start: 20230507
  3. RITUXIMAB [Suspect]
     Active Substance: RITUXIMAB
     Route: 042
     Dates: start: 20230510
  4. RITUXIMAB [Suspect]
     Active Substance: RITUXIMAB
     Route: 042
     Dates: start: 20230705
  5. RITUXIMAB [Suspect]
     Active Substance: RITUXIMAB
     Route: 065
  6. RITUXIMAB [Suspect]
     Active Substance: RITUXIMAB
     Route: 042
  7. RITUXIMAB [Suspect]
     Active Substance: RITUXIMAB
     Route: 065
     Dates: start: 20230507
  8. RITUXIMAB [Suspect]
     Active Substance: RITUXIMAB
     Route: 042
     Dates: start: 20230705
  9. LENALIDOMIDE [Suspect]
     Active Substance: LENALIDOMIDE
     Indication: Follicular lymphoma
     Route: 048
     Dates: start: 20230315
  10. LENALIDOMIDE [Suspect]
     Active Substance: LENALIDOMIDE
     Route: 048
     Dates: start: 20230530
  11. LENALIDOMIDE [Suspect]
     Active Substance: LENALIDOMIDE
     Route: 048
     Dates: start: 20230614
  12. LENALIDOMIDE [Suspect]
     Active Substance: LENALIDOMIDE
     Route: 048
     Dates: start: 20230627, end: 20230919
  13. LENALIDOMIDE [Suspect]
     Active Substance: LENALIDOMIDE
     Route: 048
     Dates: start: 20230712
  14. LENALIDOMIDE [Suspect]
     Active Substance: LENALIDOMIDE
     Route: 048
     Dates: start: 20230627
  15. LENALIDOMIDE [Suspect]
     Active Substance: LENALIDOMIDE
     Route: 048
     Dates: end: 20230919
  16. LENALIDOMIDE [Suspect]
     Active Substance: LENALIDOMIDE
     Route: 048
     Dates: start: 20230530
  17. LENALIDOMIDE [Suspect]
     Active Substance: LENALIDOMIDE
     Route: 048
  18. LENALIDOMIDE [Suspect]
     Active Substance: LENALIDOMIDE
     Route: 048
  19. LENALIDOMIDE [Suspect]
     Active Substance: LENALIDOMIDE
     Route: 048
  20. LENALIDOMIDE [Suspect]
     Active Substance: LENALIDOMIDE
     Route: 048
     Dates: end: 20230919
  21. LENALIDOMIDE [Suspect]
     Active Substance: LENALIDOMIDE
     Route: 048
     Dates: end: 20230919
  22. LENALIDOMIDE [Suspect]
     Active Substance: LENALIDOMIDE
     Route: 048
     Dates: start: 20230315
  23. LENALIDOMIDE [Suspect]
     Active Substance: LENALIDOMIDE
     Route: 048
     Dates: start: 20230614
  24. LENALIDOMIDE [Suspect]
     Active Substance: LENALIDOMIDE
     Route: 048
     Dates: start: 20230712
  25. LENALIDOMIDE [Suspect]
     Active Substance: LENALIDOMIDE
     Route: 065
     Dates: start: 20230614
  26. LENALIDOMIDE [Suspect]
     Active Substance: LENALIDOMIDE
     Route: 065
     Dates: start: 20230627, end: 20230919
  27. LENALIDOMIDE [Suspect]
     Active Substance: LENALIDOMIDE
     Route: 065
     Dates: start: 20230530
  28. LENALIDOMIDE [Suspect]
     Active Substance: LENALIDOMIDE
     Route: 065
     Dates: start: 20230315
  29. LENALIDOMIDE [Suspect]
     Active Substance: LENALIDOMIDE
     Route: 065
     Dates: start: 20230919
  30. LENALIDOMIDE [Suspect]
     Active Substance: LENALIDOMIDE
  31. TAFASITAMAB [Suspect]
     Active Substance: TAFASITAMAB
     Indication: Follicular lymphoma
     Route: 042
     Dates: start: 20230315, end: 20230913
  32. TAFASITAMAB [Suspect]
     Active Substance: TAFASITAMAB
     Route: 042
     Dates: start: 20230531
  33. TAFASITAMAB [Suspect]
     Active Substance: TAFASITAMAB
     Route: 042
     Dates: start: 20230621
  34. TAFASITAMAB [Suspect]
     Active Substance: TAFASITAMAB
     Route: 042
     Dates: start: 20230719
  35. TAFASITAMAB [Suspect]
     Active Substance: TAFASITAMAB
     Route: 065
  36. TAFASITAMAB [Suspect]
     Active Substance: TAFASITAMAB
     Route: 042
     Dates: start: 20230531
  37. TAFASITAMAB [Suspect]
     Active Substance: TAFASITAMAB
     Route: 042
     Dates: end: 20230913
  38. TAFASITAMAB [Suspect]
     Active Substance: TAFASITAMAB
     Route: 042
  39. TAFASITAMAB [Suspect]
     Active Substance: TAFASITAMAB
     Route: 042
     Dates: start: 20230531
  40. TAFASITAMAB [Suspect]
     Active Substance: TAFASITAMAB
     Route: 042
     Dates: start: 20230315
  41. TAFASITAMAB [Suspect]
     Active Substance: TAFASITAMAB
     Route: 042
     Dates: start: 20230531
  42. TAFASITAMAB [Suspect]
     Active Substance: TAFASITAMAB
     Route: 042
     Dates: start: 20230315, end: 20230913
  43. TAFASITAMAB [Suspect]
     Active Substance: TAFASITAMAB
     Route: 065
     Dates: start: 20230315, end: 20230913
  44. TAFASITAMAB [Suspect]
     Active Substance: TAFASITAMAB
     Route: 065
     Dates: start: 20230621
  45. TAFASITAMAB [Suspect]
     Active Substance: TAFASITAMAB
     Route: 065
     Dates: start: 20230719
  46. TAFASITAMAB [Suspect]
     Active Substance: TAFASITAMAB
  47. TAFASITAMAB [Suspect]
     Active Substance: TAFASITAMAB
     Dates: end: 20230913
  48. TAFASITAMAB [Suspect]
     Active Substance: TAFASITAMAB
  49. TAFASITAMAB [Suspect]
     Active Substance: TAFASITAMAB
  50. TAFASITAMAB [Suspect]
     Active Substance: TAFASITAMAB
     Dates: start: 20230531
  51. PEGFILGRASTIM [Concomitant]
     Active Substance: PEGFILGRASTIM
     Indication: Product used for unknown indication
     Route: 058
     Dates: start: 20230607
  52. PEGFILGRASTIM [Concomitant]
     Active Substance: PEGFILGRASTIM
     Route: 058
     Dates: start: 20230703
  53. PEGFILGRASTIM [Concomitant]
     Active Substance: PEGFILGRASTIM
     Route: 065
     Dates: start: 20230703
  54. PEGFILGRASTIM [Concomitant]
     Active Substance: PEGFILGRASTIM
     Dates: start: 20230703
  55. PEGFILGRASTIM [Concomitant]
     Active Substance: PEGFILGRASTIM
     Route: 065
     Dates: start: 20230607
  56. PEGFILGRASTIM [Concomitant]
     Active Substance: PEGFILGRASTIM
     Dates: start: 20230607

REACTIONS (4)
  - Neutrophil count decreased [Recovered/Resolved]
  - Neutrophil count decreased [Recovered/Resolved]
  - Pneumonia [Unknown]
  - Disease progression [Unknown]

NARRATIVE: CASE EVENT DATE: 20230605
